FAERS Safety Report 18520588 (Version 1)
Quarter: 2020Q4

REPORT INFORMATION
  Report Type: Spontaneous
  Country: US (occurrence: US)
  Receive Date: 20201118
  Receipt Date: 20201118
  Transmission Date: 20210114
  Serious: Yes (Hospitalization)
  Sender: FDA-Public Use
  Company Number: None

PATIENT
  Age: 87 Year
  Sex: Male

DRUGS (6)
  1. ATORVASTATIN [Concomitant]
     Active Substance: ATORVASTATIN
  2. VORICONAZOLE 200MG TAB [Suspect]
     Active Substance: VORICONAZOLE
     Indication: PROSTATE CANCER
     Route: 048
     Dates: start: 20201104
  3. ABIRATERONE ACETATE 250MG TAB [Suspect]
     Active Substance: ABIRATERONE ACETATE
     Indication: PROSTATE CANCER
     Route: 048
     Dates: start: 20201104
  4. PIOGUTA/MET [Concomitant]
  5. TRAMADOL HCL [Concomitant]
     Active Substance: TRAMADOL HYDROCHLORIDE
  6. GABAPENTIN. [Concomitant]
     Active Substance: GABAPENTIN

REACTIONS (3)
  - Contusion [None]
  - Fall [None]
  - Head injury [None]

NARRATIVE: CASE EVENT DATE: 20201113
